FAERS Safety Report 9887902 (Version 1)
Quarter: 2014Q1

REPORT INFORMATION
  Report Type: Spontaneous
  Country: US (occurrence: US)
  Receive Date: 20140211
  Receipt Date: 20140211
  Transmission Date: 20141002
  Serious: Yes (Other)
  Sender: FDA-Public Use
  Company Number: US-ACTAVIS-2014-02060

PATIENT
  Age: 70 Year
  Sex: Female
  Weight: 57 kg

DRUGS (1)
  1. FENTANYL-50 (WATSON LABORATORIES) [Suspect]
     Indication: PAIN
     Dosage: 1 PATCH EVERY 72 HOURS
     Route: 062
     Dates: start: 201307, end: 201401

REACTIONS (8)
  - Apparent death [Unknown]
  - Azotaemia [Unknown]
  - Abnormal behaviour [Unknown]
  - Potentiating drug interaction [Unknown]
  - Screaming [Unknown]
  - Urinary incontinence [Unknown]
  - Constipation [Unknown]
  - Overdose [Unknown]
